FAERS Safety Report 9822105 (Version 1)
Quarter: 2014Q1

REPORT INFORMATION
  Report Type: Spontaneous
  Country: NL (occurrence: NL)
  Receive Date: 20140116
  Receipt Date: 20140116
  Transmission Date: 20141002
  Serious: Yes (Other)
  Sender: FDA-Public Use
  Company Number: NL-PFIZER INC-2014012245

PATIENT
  Age: 34 Year
  Sex: Female

DRUGS (1)
  1. EFEXOR [Suspect]

REACTIONS (5)
  - Homicide [Unknown]
  - Psychotic disorder [Unknown]
  - Physical assault [Unknown]
  - Amnesia [Unknown]
  - Confusional state [Unknown]
